FAERS Safety Report 13131149 (Version 4)
Quarter: 2017Q3

REPORT INFORMATION
  Report Type: Report from Study
  Country: SK (occurrence: SK)
  Receive Date: 20170119
  Receipt Date: 20170724
  Transmission Date: 20171127
  Serious: Yes (Hospitalization, Other)
  Sender: FDA-Public Use
  Company Number: SK-ROCHE-1798830

PATIENT
  Age: 69 Year
  Sex: Male
  Weight: 79 kg

DRUGS (19)
  1. ATEZOLIZUMAB. [Suspect]
     Active Substance: ATEZOLIZUMAB
     Indication: NON-SMALL CELL LUNG CANCER STAGE IV
     Dosage: MOST RECENT DOSE PRIOR TO EVENT ONSET: 01/JUL/2016 AT 1200 MG
     Route: 042
     Dates: start: 20160601
  2. HELICID [Concomitant]
     Indication: GASTRITIS PROPHYLAXIS
     Route: 065
     Dates: start: 20160418
  3. METRONIDAZOL [Concomitant]
     Active Substance: METRONIDAZOLE
     Indication: DIARRHOEA
     Route: 065
     Dates: start: 20160614, end: 20160621
  4. MAGNESIUM SULPHURICUM BIOTIKA [Concomitant]
     Indication: SUPPLEMENTATION THERAPY
     Route: 065
     Dates: start: 20160721, end: 20160728
  5. LAGOSA [Concomitant]
     Indication: LIVER DISORDER
     Route: 065
     Dates: start: 20160803, end: 201608
  6. CARBOPLATIN. [Suspect]
     Active Substance: CARBOPLATIN
     Indication: NON-SMALL CELL LUNG CANCER STAGE IV
     Dosage: ON 01/JUL/2016, HE RECEIVED THE MOST RECENT DOSE (580 MG) PRIOR TO EVENT ONSET.?AREA UNDER THE CONCE
     Route: 042
     Dates: start: 20160601
  7. CALCIUM CHLORATUM [Concomitant]
     Indication: HYPOCALCAEMIA
     Route: 065
     Dates: start: 20160803, end: 201608
  8. EMEND [Concomitant]
     Active Substance: APREPITANT
     Indication: PROPHYLACTIC CHEMOTHERAPY
     Route: 065
     Dates: start: 20160701, end: 20160702
  9. BEVACIZUMAB. [Suspect]
     Active Substance: BEVACIZUMAB
     Indication: NON-SMALL CELL LUNG CANCER STAGE IV
     Dosage: ON 01/JUL/2016, HE RECEIVED THE MOST RECENT DOSE (1290 MG) PRIOR TO EVENT ONSET.?STARTING DOSE TAKE
     Route: 042
     Dates: start: 20160601
  10. ALBUMIN [Concomitant]
     Active Substance: ALBUMIN HUMAN
     Indication: HYPOALBUMINAEMIA
     Route: 065
     Dates: start: 20160724, end: 20160726
  11. FRAGMIN [Concomitant]
     Active Substance: DALTEPARIN SODIUM
     Indication: VENA CAVA THROMBOSIS
     Route: 065
     Dates: start: 20160722
  12. DITHIADEN [Concomitant]
     Active Substance: BISULEPIN
     Indication: PROPHYLACTIC CHEMOTHERAPY
     Route: 065
     Dates: start: 20160701, end: 20160701
  13. FRAXIPARINE [Concomitant]
     Active Substance: NADROPARIN CALCIUM
     Indication: THROMBOSIS PROPHYLAXIS
     Route: 065
     Dates: start: 20160602, end: 20160721
  14. TANTUM VERDE [Concomitant]
     Active Substance: BENZYDAMINE HYDROCHLORIDE
     Route: 065
     Dates: start: 20160803, end: 201608
  15. DEGAN [Concomitant]
     Active Substance: METOCLOPRAMIDE HYDROCHLORIDE
     Indication: NAUSEA
     Route: 065
     Dates: start: 20160727
  16. POTASSIUM CHLORIDE. [Concomitant]
     Active Substance: POTASSIUM CHLORIDE
     Indication: SUPPLEMENTATION THERAPY
     Route: 065
     Dates: start: 20160721, end: 20160728
  17. PACLITAXEL. [Suspect]
     Active Substance: PACLITAXEL
     Indication: NON-SMALL CELL LUNG CANCER STAGE IV
     Dosage: ON 01/JUL/2016, HE RECEIVED THE MOST RECENT DOSE (280 MG) PRIOR TO EVENT ONSET.
     Route: 042
     Dates: start: 20160601
  18. KALIUM CHLORID [Concomitant]
     Route: 065
     Dates: start: 20160721, end: 20160728
  19. RANITIDINE. [Concomitant]
     Active Substance: RANITIDINE
     Indication: PROPHYLACTIC CHEMOTHERAPY
     Route: 065
     Dates: start: 20160630, end: 20160701

REACTIONS (4)
  - Pneumonia [Recovered/Resolved]
  - Infectious colitis [Recovered/Resolved]
  - Dehydration [Recovered/Resolved]
  - Dermatitis [Recovered/Resolved]

NARRATIVE: CASE EVENT DATE: 20160718
